FAERS Safety Report 12185267 (Version 2)
Quarter: 2016Q1

REPORT INFORMATION
  Report Type: Spontaneous
  Country: JP (occurrence: JP)
  Receive Date: 20160316
  Receipt Date: 20160328
  Transmission Date: 20160526
  Serious: Yes (Other)
  Sender: FDA-Public Use
  Company Number: PHHY2016JP031973

PATIENT
  Age: 72 Year
  Sex: Male

DRUGS (3)
  1. WARFARIN [Interacting]
     Active Substance: WARFARIN
     Dosage: 1 UNK, UNK
     Route: 065
  2. WARFARIN [Interacting]
     Active Substance: WARFARIN
     Dosage: 0.75 MG, QD
     Route: 065
  3. WARFARIN [Suspect]
     Active Substance: WARFARIN
     Indication: CEREBRAL INFARCTION
     Dosage: 2 MG, QD
     Route: 065

REACTIONS (3)
  - Drug interaction [Unknown]
  - Prothrombin time abnormal [Recovered/Resolved]
  - International normalised ratio fluctuation [Recovered/Resolved]
